FAERS Safety Report 5701155-9 (Version None)
Quarter: 2008Q2

REPORT INFORMATION
  Report Type: 
  Country: None (occurrence: None)
  Receive Date: 20080410
  Receipt Date: 20080404
  Transmission Date: 20081010
  Serious: Yes (Other)
  Sender: FDA-Public Use
  Company Number: DE-PFIZER INC-2008030530

PATIENT
  Age: 63 Year
  Sex: Female

DRUGS (1)
  1. REVATIO [Suspect]
     Indication: DYSPNOEA
     Route: 048
     Dates: start: 20080129, end: 20080301

REACTIONS (3)
  - ARTHRALGIA [None]
  - BACK PAIN [None]
  - DIZZINESS [None]
